FAERS Safety Report 7519859-4 (Version None)
Quarter: 2011Q2

REPORT INFORMATION
  Report Type: 
  Country: None (occurrence: None)
  Receive Date: 20110524
  Receipt Date: 20110511
  Transmission Date: 20111010
  Serious: Yes (Other)
  Sender: FDA-Public Use
  Company Number: US-1186082

PATIENT
  Age: 8 Year
  Sex: Male
  Weight: 61 kg

DRUGS (4)
  1. CYCLOGYL [Suspect]
     Indication: OPHTHALMOLOGICAL EXAMINATION
     Dosage: OPHTHALMIC
     Route: 047
     Dates: start: 20110425, end: 20110425
  2. MULTI-VITAMIN [Concomitant]
  3. AUGMENTIN '125' [Concomitant]
  4. COQ10 [Concomitant]

REACTIONS (15)
  - OCULAR HYPERAEMIA [None]
  - DRUG EFFECT PROLONGED [None]
  - HALLUCINATION, VISUAL [None]
  - ABNORMAL BEHAVIOUR [None]
  - PYREXIA [None]
  - EYE IRRITATION [None]
  - ERYTHEMA [None]
  - AMNESIA [None]
  - CONFUSIONAL STATE [None]
  - SOMNOLENCE [None]
  - MYDRIASIS [None]
  - SUDDEN ONSET OF SLEEP [None]
  - COORDINATION ABNORMAL [None]
  - DISORIENTATION [None]
  - CHROMATOPSIA [None]
